FAERS Safety Report 6601095-7 (Version None)
Quarter: 2010Q1

REPORT INFORMATION
  Report Type: 
  Country: None (occurrence: None)
  Receive Date: 20100224
  Receipt Date: 20100224
  Transmission Date: 20100710
  Serious: No
  Sender: FDA-Public Use
  Company Number: None

PATIENT
  Sex: Female
  Weight: 60.782 kg

DRUGS (1)
  1. TRI-LO SPRINTEC 25 MCG TEVA PHARMACEUTICALS [Suspect]
     Indication: MENSTRUATION IRREGULAR
     Dosage: 25 MCG DAILY PO
     Route: 048
     Dates: start: 20091201, end: 20100201

REACTIONS (4)
  - FATIGUE [None]
  - HEADACHE [None]
  - NAUSEA [None]
  - PRODUCT SUBSTITUTION ISSUE [None]
